FAERS Safety Report 9785845 (Version 3)
Quarter: 2014Q2

REPORT INFORMATION
  Report Type: Report from Study
  Country: DE (occurrence: DE)
  Receive Date: 20131227
  Receipt Date: 20140617
  Transmission Date: 20141212
  Serious: Yes (Life-Threatening, Hospitalization)
  Sender: FDA-Public Use
  Company Number: DE-CELGENEUS-062-21880-13112104

PATIENT
  Age: 69 Year
  Sex: Male
  Weight: 63 kg

DRUGS (10)
  1. REVLIMID [Suspect]
     Indication: PLASMA CELL MYELOMA
     Dosage: 25 MILLIGRAM
     Route: 048
     Dates: start: 20131031, end: 20131106
  2. REVLIMID [Suspect]
     Dosage: 25 MILLIGRAM
     Route: 048
     Dates: start: 20131111, end: 20131126
  3. REVLIMID [Suspect]
     Dosage: 25 MILLIGRAM
     Route: 048
     Dates: end: 20131203
  4. REVLIMID [Suspect]
     Dosage: 25 MILLIGRAM
     Route: 048
     Dates: start: 20131212
  5. HEPARIN [Concomitant]
     Indication: PROPHYLAXIS
     Route: 058
  6. DEXAMETHASONE [Concomitant]
     Indication: PLASMA CELL MYELOMA
     Dosage: 40 MILLIGRAM
     Route: 058
     Dates: start: 20131031
  7. OCTAGAM [Concomitant]
     Indication: PLASMA CELL MYELOMA
     Route: 041
  8. BONDRONAT [Concomitant]
     Indication: PLASMA CELL MYELOMA
     Route: 041
  9. PROCORALAN [Concomitant]
     Indication: PLASMA CELL MYELOMA
     Route: 065
  10. PANTOZOL [Concomitant]
     Indication: PROPHYLAXIS
     Dosage: 20 MILLIGRAM
     Route: 048

REACTIONS (2)
  - Pulmonary embolism [Recovered/Resolved]
  - Diverticulitis [Recovered/Resolved]
